FAERS Safety Report 23635038 (Version 2)
Quarter: 2024Q2

REPORT INFORMATION
  Report Type: Report from Study
  Country: US (occurrence: US)
  Receive Date: 20240315
  Receipt Date: 20240502
  Transmission Date: 20240716
  Serious: No
  Sender: FDA-Public Use
  Company Number: US-LUNDBECK-DKLU3074931

PATIENT
  Age: 57 Year
  Sex: Female

DRUGS (3)
  1. VYEPTI [Suspect]
     Active Substance: EPTINEZUMAB-JJMR
     Indication: Migraine
     Route: 041
     Dates: start: 20240126
  2. BOTOX [Concomitant]
     Active Substance: ONABOTULINUMTOXINA
     Indication: Product used for unknown indication
     Route: 065
  3. AIMOVIG [Concomitant]
     Active Substance: ERENUMAB-AOOE
     Indication: Product used for unknown indication
     Route: 065

REACTIONS (7)
  - Infusion related reaction [Unknown]
  - Paraesthesia [Unknown]
  - Headache [Unknown]
  - Infusion site haematoma [Recovered/Resolved]
  - Infusion site bruising [Unknown]
  - Therapeutic response shortened [Unknown]
  - Nausea [Unknown]

NARRATIVE: CASE EVENT DATE: 20240101
